FAERS Safety Report 4963372-5 (Version None)
Quarter: 2006Q1

REPORT INFORMATION
  Report Type: 
  Country: None (occurrence: None)
  Receive Date: 20060331
  Receipt Date: 20060322
  Transmission Date: 20060701
  Serious: Yes (Hospitalization)
  Sender: FDA-Public Use
  Company Number: US-2005-010011

PATIENT
  Age: 68 Year
  Sex: Female

DRUGS (1)
  1. BETASERON [Suspect]
     Indication: RELAPSING-REMITTING MULTIPLE SCLEROSIS
     Dosage: 8 MIU, EVERY 2D, SUBCUTANEOUS
     Route: 058
     Dates: start: 20040204

REACTIONS (6)
  - GASTRIC ULCER [None]
  - HYPERTENSION [None]
  - INFLUENZA [None]
  - PANCREATIC MASS [None]
  - PANCREATITIS [None]
  - SPLENECTOMY [None]
